FAERS Safety Report 16821917 (Version 2)
Quarter: 2020Q3

REPORT INFORMATION
  Report Type: Spontaneous
  Country: NO (occurrence: NO)
  Receive Date: 20190918
  Receipt Date: 20200803
  Transmission Date: 20201102
  Serious: Yes (Hospitalization, Other)
  Sender: FDA-Public Use
  Company Number: NO-UCBSA-2019039272

PATIENT
  Age: 45 Year
  Sex: Female
  Weight: 55 kg

DRUGS (4)
  1. FYCOMPA [Suspect]
     Active Substance: PERAMPANEL
     Indication: EPILEPSY
     Dosage: 6 MILLIGRAM, ONCE DAILY (QD)
     Route: 048
  2. BRIVIACT [Suspect]
     Active Substance: BRIVARACETAM
     Indication: PRODUCT USED FOR UNKNOWN INDICATION
     Dosage: UNK
  3. DIVISUN [Concomitant]
     Active Substance: CHOLECALCIFEROL
     Indication: VITAMIN D
  4. VIMPAT [Suspect]
     Active Substance: LACOSAMIDE
     Indication: EPILEPSY
     Dosage: 200 MILLIGRAM, 2X/DAY (BID)
     Route: 048

REACTIONS (2)
  - Status epilepticus [Recovering/Resolving]
  - Partial seizures [Recovered/Resolved]

NARRATIVE: CASE EVENT DATE: 20190117
